FAERS Safety Report 21009381 (Version 2)
Quarter: 2023Q1

REPORT INFORMATION
  Report Type: Spontaneous
  Country: JP (occurrence: JP)
  Receive Date: 20220627
  Receipt Date: 20230125
  Transmission Date: 20230417
  Serious: Yes (Other)
  Sender: FDA-Public Use
  Company Number: JP-TAKEDA-2021TJP125791

PATIENT

DRUGS (2)
  1. ZEJULA [Suspect]
     Active Substance: NIRAPARIB
     Indication: Ovarian cancer stage III
     Dosage: 200 MILLIGRAM
     Route: 048
     Dates: start: 20211104, end: 20211124
  2. ZEJULA [Suspect]
     Active Substance: NIRAPARIB
     Indication: Uterine cancer
     Dosage: UNK
     Route: 065

REACTIONS (4)
  - Pharyngeal ulceration [Unknown]
  - Neutrophil count decreased [Unknown]
  - Platelet count decreased [Unknown]
  - Pharyngeal disorder [Recovered/Resolved]

NARRATIVE: CASE EVENT DATE: 20211116
